FAERS Safety Report 15190710 (Version 1)
Quarter: 2018Q3

REPORT INFORMATION
  Report Type: Spontaneous
  Country: US (occurrence: US)
  Receive Date: 20180724
  Receipt Date: 20180724
  Transmission Date: 20181010
  Serious: Yes (Hospitalization, Other)
  Sender: FDA-Public Use
  Company Number: US-MIST-TIR-2018-0719

PATIENT
  Age: 87 Year
  Sex: Male

DRUGS (2)
  1. LEVOTHYROXINE. [Suspect]
     Active Substance: LEVOTHYROXINE
     Dosage: 50MCG DAILY
     Route: 048
  2. LEVOTHYROXINE. [Suspect]
     Active Substance: LEVOTHYROXINE
     Indication: HYPOTHYROIDISM
     Dosage: 25MCG DAILY, ON AN EMPTY STOMACH ONE HOUR BEFORE BREAKFAST
     Route: 048

REACTIONS (9)
  - Bradycardia [Unknown]
  - Diastolic dysfunction [Unknown]
  - Atrial fibrillation [Not Recovered/Not Resolved]
  - Bundle branch block left [Unknown]
  - Pericardial fibrosis [Unknown]
  - Thyroxine free decreased [Unknown]
  - Atrioventricular block [Recovered/Resolved]
  - Blood thyroid stimulating hormone increased [Unknown]
  - Atrial tachycardia [Unknown]
